FAERS Safety Report 19750915 (Version 1)
Quarter: 2021Q3

REPORT INFORMATION
  Report Type: Spontaneous
  Country: IN (occurrence: IN)
  Receive Date: 20210826
  Receipt Date: 20210826
  Transmission Date: 20211014
  Serious: Yes (Death)
  Sender: FDA-Public Use
  Company Number: IN-PFIZER INC-202101063582

PATIENT
  Age: 77 Year
  Sex: Male

DRUGS (1)
  1. CRIZALK [Suspect]
     Active Substance: CRIZOTINIB
     Indication: BLOOD ALKALINE PHOSPHATASE
     Dosage: 250 MG, 2X/DAY
     Route: 048
     Dates: start: 20190402, end: 20210415

REACTIONS (1)
  - Death [Fatal]

NARRATIVE: CASE EVENT DATE: 20210415
